FAERS Safety Report 4773801-8 (Version None)
Quarter: 2005Q3

REPORT INFORMATION
  Report Type: 
  Country: None (occurrence: None)
  Receive Date: 20050920
  Receipt Date: 20050823
  Transmission Date: 20060218
  Serious: Yes (Life-Threatening, Hospitalization, Other)
  Sender: FDA-Public Use
  Company Number: US-GLAXOSMITHKLINE-A0571519A

PATIENT
  Age: 64 Year
  Sex: Female
  Weight: 79.1 kg

DRUGS (7)
  1. TOPOTECAN [Suspect]
     Indication: OVARIAN CANCER
     Dosage: 2.2MG SEE DOSAGE TEXT
     Route: 042
     Dates: start: 20050601
  2. THALIDOMIDE [Concomitant]
     Dosage: 100MG AT NIGHT
  3. CHEMOTHERAPY [Concomitant]
  4. TENORMIN [Concomitant]
     Dosage: 50MG PER DAY
  5. ASPIRIN [Concomitant]
     Dosage: 81MG PER DAY
  6. MAGNESIUM [Concomitant]
  7. AMILORIDE HCL [Concomitant]
     Dosage: 5MG PER DAY

REACTIONS (9)
  - ASTHENIA [None]
  - DYSPHONIA [None]
  - EAR DISCOMFORT [None]
  - FEBRILE NEUTROPENIA [None]
  - FLATULENCE [None]
  - HYPOMAGNESAEMIA [None]
  - NASOPHARYNGITIS [None]
  - PANCYTOPENIA [None]
  - PHARYNGOLARYNGEAL PAIN [None]
